FAERS Safety Report 12212990 (Version 1)
Quarter: 2016Q1

REPORT INFORMATION
  Report Type: Spontaneous
  Country: TR (occurrence: TR)
  Receive Date: 20160328
  Receipt Date: 20160328
  Transmission Date: 20160526
  Serious: Yes (Other)
  Sender: FDA-Public Use
  Company Number: TR-ACCORD-039091

PATIENT
  Age: 63 Year
  Sex: Female

DRUGS (1)
  1. MITOMYCIN. [Suspect]
     Active Substance: MITOMYCIN
     Indication: PTERYGIUM
     Dosage: MITOMYCIN C??RECEIVED INTRAOPERATIVE TOPICAL
     Route: 061

REACTIONS (1)
  - Necrotising scleritis [Unknown]
